FAERS Safety Report 9927336 (Version 1)
Quarter: 2014Q1

REPORT INFORMATION
  Report Type: Report from Study
  Country: CA (occurrence: CA)
  Receive Date: 20140226
  Receipt Date: 20140226
  Transmission Date: 20141002
  Serious: Yes (Other)
  Sender: FDA-Public Use
  Company Number: PHHY2014CA022840

PATIENT
  Age: 73 Year
  Sex: Female
  Weight: 75.4 kg

DRUGS (3)
  1. ACLASTA/ZOLEDRONATE [Suspect]
     Route: 042
  2. FOSAMAX [Concomitant]
     Indication: MALABSORPTION
     Dosage: 70 MG, UNK
     Dates: start: 20020122, end: 20091126
  3. VITAMIN D [Concomitant]
     Dosage: 10000 IU, WEEKLY
     Dates: start: 20091126

REACTIONS (2)
  - Spinal compression fracture [Recovered/Resolved]
  - Spinal fracture [Unknown]
